FAERS Safety Report 19722591 (Version 1)
Quarter: 2021Q3

REPORT INFORMATION
  Report Type: Spontaneous
  Country: US (occurrence: US)
  Receive Date: 20210819
  Receipt Date: 20210819
  Transmission Date: 20211014
  Serious: No
  Sender: FDA-Public Use
  Company Number: US-AMNEAL PHARMACEUTICALS-2021-AMRX-00814

PATIENT
  Age: 66 Year
  Sex: Male
  Weight: 95.25 kg

DRUGS (1)
  1. DOXYCYCLINE HYCLATE. [Suspect]
     Active Substance: DOXYCYCLINE HYCLATE
     Indication: KNEE ARTHROPLASTY
     Dosage: 100 MILLIGRAM, 2X/DAY
     Route: 048
     Dates: start: 20200526, end: 20200826

REACTIONS (4)
  - Nausea [Unknown]
  - Dysgeusia [Not Recovered/Not Resolved]
  - Eye irritation [Not Recovered/Not Resolved]
  - Parosmia [Not Recovered/Not Resolved]

NARRATIVE: CASE EVENT DATE: 20200527
